FAERS Safety Report 17119399 (Version 1)
Quarter: 2019Q4

REPORT INFORMATION
  Report Type: Spontaneous
  Country: JP (occurrence: JP)
  Receive Date: 20191206
  Receipt Date: 20191206
  Transmission Date: 20200122
  Serious: Yes (Hospitalization)
  Sender: FDA-Public Use
  Company Number: JP-B.I. PHARMACEUTICALS,INC./RIDGEFIELD-2019-NB-117240

PATIENT
  Age: 70 Year
  Sex: Male
  Weight: 62 kg

DRUGS (1)
  1. TRAZENTA [Suspect]
     Active Substance: LINAGLIPTIN
     Indication: PRODUCT USED FOR UNKNOWN INDICATION
     Route: 065
     Dates: start: 201705

REACTIONS (1)
  - Blood glucose increased [Recovering/Resolving]

NARRATIVE: CASE EVENT DATE: 2019
